FAERS Safety Report 21091220 (Version 1)
Quarter: 2022Q3

REPORT INFORMATION
  Report Type: Spontaneous
  Country: VE (occurrence: VE)
  Receive Date: 20220716
  Receipt Date: 20220716
  Transmission Date: 20221027
  Serious: Yes (Death, Hospitalization)
  Sender: FDA-Public Use
  Company Number: VE-NOVARTISPH-NVSC2020VE310637

PATIENT
  Sex: Female

DRUGS (2)
  1. GLIVEC [Suspect]
     Active Substance: IMATINIB MESYLATE
     Indication: Chronic myeloid leukaemia
     Dosage: 200 MG
     Route: 065
  2. GLIVEC [Suspect]
     Active Substance: IMATINIB MESYLATE
     Dosage: 400 MG (4 X 100 MG)
     Route: 065

REACTIONS (6)
  - Pneumonia [Fatal]
  - Condition aggravated [Unknown]
  - Swelling [Unknown]
  - Haemoglobin decreased [Unknown]
  - Swelling face [Unknown]
  - Pruritus [Unknown]
